FAERS Safety Report 8411525-6 (Version None)
Quarter: 2012Q2

REPORT INFORMATION
  Report Type: 
  Country: None (occurrence: None)
  Receive Date: 20120605
  Receipt Date: 20120601
  Transmission Date: 20120825
  Serious: Yes (Death, Hospitalization, Other)
  Sender: FDA-Public Use
  Company Number: KR-SANOFI-AVENTIS-2012SA039003

PATIENT
  Age: 69 Year
  Sex: Male

DRUGS (6)
  1. PREDNISONE [Suspect]
     Indication: PREMEDICATION
     Route: 065
  2. TAXOTERE [Suspect]
     Indication: PROSTATE CANCER
     Dosage: OVER 1 HOUR
     Route: 042
  3. TAXOTERE [Suspect]
     Dosage: OVER 1 HOUR
     Route: 042
  4. ESTRAMUSTINE [Concomitant]
  5. DEXAMETHASONE [Suspect]
     Indication: PROPHYLAXIS
     Route: 042
  6. TAXOTERE [Suspect]
     Dosage: CUMULATIVE DOSAGE IN 3RD CYCLE: 350 MG
     Route: 042

REACTIONS (9)
  - DYSPNOEA [None]
  - SEPTIC SHOCK [None]
  - PRODUCTIVE COUGH [None]
  - INTERSTITIAL LUNG DISEASE [None]
  - HYPOTENSION [None]
  - PYREXIA [None]
  - LEUKOPENIA [None]
  - WHITE BLOOD CELL COUNT INCREASED [None]
  - COUGH [None]
